FAERS Safety Report 5037361-9 (Version None)
Quarter: 2006Q2

REPORT INFORMATION
  Report Type: 
  Country: None (occurrence: None)
  Receive Date: 20060605
  Receipt Date: 20060313
  Transmission Date: 20061013
  Serious: No
  Sender: FDA-Public Use
  Company Number: IND-AE-06-SAN-013

PATIENT
  Age: 72 Year
  Sex: Female

DRUGS (3)
  1. SANCTURA [Suspect]
     Indication: POLLAKIURIA
  2. DITROPAN [Suspect]
     Indication: POLLAKIURIA
  3. ENABLEX [Suspect]
     Indication: POLLAKIURIA

REACTIONS (1)
  - CONSTIPATION [None]
